FAERS Safety Report 17625442 (Version 1)
Quarter: 2020Q2

REPORT INFORMATION
  Report Type: Spontaneous
  Country: US (occurrence: US)
  Receive Date: 20200403
  Receipt Date: 20200403
  Transmission Date: 20200713
  Serious: Yes (Other)
  Sender: FDA-Public Use
  Company Number: US-AUROBINDO-AUR-APL-2020-016491

PATIENT
  Age: 65 Year
  Sex: Female

DRUGS (6)
  1. METHYLPREDNISOLONE. [Concomitant]
     Active Substance: METHYLPREDNISOLONE
     Indication: BACK PAIN
     Dosage: 80 MILLIGRAM
     Route: 008
  2. TOPIRAMATE. [Suspect]
     Active Substance: TOPIRAMATE
     Indication: RADICULAR PAIN
     Dosage: INCREASED TO 50 MG IN MONTH 3
     Route: 065
  3. LIDOCAINE. [Concomitant]
     Active Substance: LIDOCAINE
     Indication: BACK PAIN
     Dosage: 5 MILLILITER
     Route: 008
  4. TOPIRAMATE. [Suspect]
     Active Substance: TOPIRAMATE
     Dosage: 25 MILLIGRAM, ONCE A DAY
     Route: 065
  5. TOPIRAMATE. [Suspect]
     Active Substance: TOPIRAMATE
     Dosage: INCREASED TO 50 MG IN MONTH 3 AND CONTINUED TILL 17 MONTHS
     Route: 065
  6. OMNIPAQUE [Concomitant]
     Active Substance: IOHEXOL
     Indication: BACK PAIN
     Dosage: UNK, 300 MG IODINE/ML
     Route: 042

REACTIONS (4)
  - Withdrawal syndrome [Recovered/Resolved]
  - Myalgia [Recovered/Resolved]
  - Tremor [Recovered/Resolved]
  - Drug dependence [Recovered/Resolved]
